FAERS Safety Report 8035509-5 (Version None)
Quarter: 2012Q1

REPORT INFORMATION
  Report Type: 
  Country: None (occurrence: None)
  Receive Date: 20120110
  Receipt Date: 20120110
  Transmission Date: 20120608
  Serious: Yes (Hospitalization)
  Sender: FDA-Public Use
  Company Number: None

PATIENT
  Age: 12 Year
  Sex: Male
  Weight: 52 kg

DRUGS (1)
  1. TACROLIMUS [Suspect]
     Indication: HEART TRANSPLANT
     Dosage: TACROLIMUS 4 MG Q 12H PO
     Route: 048
     Dates: start: 20110923, end: 20110929

REACTIONS (3)
  - POSTERIOR REVERSIBLE ENCEPHALOPATHY SYNDROME [None]
  - CONVULSION [None]
  - BLINDNESS [None]
